FAERS Safety Report 7819017-X (Version None)
Quarter: 2011Q4

REPORT INFORMATION
  Report Type: 
  Country: None (occurrence: None)
  Receive Date: 20111012
  Receipt Date: 20110928
  Transmission Date: 20120403
  Serious: Yes (Other)
  Sender: FDA-Public Use
  Company Number: 2011090127

PATIENT
  Sex: Female

DRUGS (6)
  1. OXYCONTIN [Suspect]
     Indication: PAIN
     Dosage: 240 MG (80 MG, 1 IN 8 HR), ORAL
     Route: 048
  2. PERCOCET [Suspect]
     Indication: PAIN
     Dosage: 10/325 MG (Q 6-8 HOURS, PRN),ORAL
     Route: 048
  3. XANAX [Suspect]
     Indication: ANXIETY
     Dosage: 2 MG (2 MG, 1 IN  1 D), LOCAL INFILTRATION
  4. SOMA [Suspect]
     Dosage: ORAL
     Route: 048
     Dates: end: 20110613
  5. BACLOFEN [Suspect]
     Indication: ANXIETY
     Dosage: 30 MG (10 MG, 3 IN 1 D), ORAL
     Route: 048
     Dates: end: 20110712
  6. LYRICA [Suspect]
     Dosage: 225 MG (75 MG, 3 IN 1 D),ORAL
     Route: 048
     Dates: end: 20110801

REACTIONS (12)
  - HEADACHE [None]
  - DEATH OF RELATIVE [None]
  - ANXIETY [None]
  - DRUG DEPENDENCE [None]
  - CONDITION AGGRAVATED [None]
  - CONVULSION [None]
  - DRUG TOLERANCE [None]
  - BRAIN INJURY [None]
  - STRESS [None]
  - BACK PAIN [None]
  - UNRESPONSIVE TO STIMULI [None]
  - SKULL FRACTURE [None]
